FAERS Safety Report 15949965 (Version 7)
Quarter: 2023Q1

REPORT INFORMATION
  Report Type: Report from Study
  Country: US (occurrence: US)
  Receive Date: 20190211
  Receipt Date: 20230316
  Transmission Date: 20230418
  Serious: Yes (Life-Threatening, Hospitalization, Other)
  Sender: FDA-Public Use
  Company Number: US-AMGEN-USACT2019012414

PATIENT
  Age: 32 Year
  Sex: Male
  Weight: 104.2 kg

DRUGS (27)
  1. BLINATUMOMAB [Suspect]
     Active Substance: BLINATUMOMAB
     Indication: B precursor type acute leukaemia
     Dosage: 28 MICROGRAM
     Route: 042
     Dates: end: 20181226
  2. CYTARABINE [Suspect]
     Active Substance: CYTARABINE
     Indication: B precursor type acute leukaemia
     Dosage: 75 MG/M2, (DAYS 30-33, 37-40)
     Route: 058
  3. CYTARABINE [Suspect]
     Active Substance: CYTARABINE
     Dosage: 75 MG/M2, (SQ OR IV DAYS 1-5 )
     Route: 065
     Dates: start: 20180723
  4. CYTARABINE [Suspect]
     Active Substance: CYTARABINE
     Dosage: TOTAL DOSE ADMINISTERED: 800 MILLIGRAM
     Route: 065
     Dates: start: 20190108, end: 20190115
  5. ETOPOSIDE [Suspect]
     Active Substance: ETOPOSIDE
     Indication: B precursor type acute leukaemia
     Dosage: 100 MG/M2, (DAYS 1-5)
     Route: 042
  6. ETOPOSIDE [Suspect]
     Active Substance: ETOPOSIDE
     Dosage: 100 MG/M2, (DAYS 1-5)
     Route: 042
     Dates: start: 20180723
  7. ETOPOSIDE [Suspect]
     Active Substance: ETOPOSIDE
     Dosage: TOTAL DOSE ADMINISTERED: 640 MILLIGRAM
     Route: 040
     Dates: start: 20190108, end: 20190111
  8. METHOTREXATE [Suspect]
     Active Substance: METHOTREXATE
     Indication: B precursor type acute leukaemia
     Dosage: 12.5 MILLIGRAM ( DAY 1)
     Route: 037
  9. METHOTREXATE [Suspect]
     Active Substance: METHOTREXATE
     Dosage: 12.5 MILLIGRAM ( DAY 1)
     Route: 037
     Dates: start: 20180723
  10. ONCASPAR [Suspect]
     Active Substance: PEGASPARGASE
     Indication: B precursor type acute leukaemia
     Dosage: 2000 IU/M2, ( IM OR IV DAY 5)
     Route: 042
  11. ONCASPAR [Suspect]
     Active Substance: PEGASPARGASE
     Dosage: 2000 IU/M2, ( IM OR IV DAY 5)
     Route: 042
     Dates: start: 20180727
  12. DAUNORUBICIN [Suspect]
     Active Substance: DAUNORUBICIN
     Indication: B precursor type acute leukaemia
     Dosage: 25 MILLIGRAM/SQ. METER  (DAYS 1, 8,15,22)
     Route: 042
  13. DAUNORUBICIN [Suspect]
     Active Substance: DAUNORUBICIN
     Dosage: 25 MILLIGRAM/SQ. METER (DAYS 1, 8,15,22)
     Route: 042
     Dates: start: 20180917
  14. VINCRISTINE SULFATE [Suspect]
     Active Substance: VINCRISTINE SULFATE
     Indication: B precursor type acute leukaemia
     Dosage: 1.4 MILLIGRAM/SQ. METER (DAYS 1, 8, 15, 22)
     Route: 042
  15. VINCRISTINE SULFATE [Suspect]
     Active Substance: VINCRISTINE SULFATE
     Dosage: 1.4 MILLIGRAM/SQ. METER
     Route: 042
     Dates: start: 20180917
  16. CYCLOPHOSPHAMIDE [Suspect]
     Active Substance: CYCLOPHOSPHAMIDE
     Indication: B precursor type acute leukaemia
     Dosage: 650 MG/M2, (DAY 29)
     Route: 042
  17. CYCLOPHOSPHAMIDE [Suspect]
     Active Substance: CYCLOPHOSPHAMIDE
     Dosage: 650 MG/M2, (DAY 29)
     Route: 042
     Dates: start: 20181029
  18. MERCAPTOPURINE [Suspect]
     Active Substance: MERCAPTOPURINE
     Indication: B precursor type acute leukaemia
     Dosage: 60 MG/M2, (DAYS 1-14, 29-42)
     Route: 048
  19. MERCAPTOPURINE [Suspect]
     Active Substance: MERCAPTOPURINE
     Dosage: 60 MG/M2, (DAYS 1-14, 29-42)
     Route: 048
     Dates: start: 20181029
  20. DEXAMETHASONE [Suspect]
     Active Substance: DEXAMETHASONE
     Indication: B precursor type acute leukaemia
     Dosage: 10 MG/M2, (DAYS 1-7, 15-21)
     Route: 065
  21. DEXAMETHASONE [Suspect]
     Active Substance: DEXAMETHASONE
     Dosage: 10 MG/M2, (DAYS 1-7, 15-21)
     Route: 065
     Dates: start: 20180917
  22. RITUXIMAB [Suspect]
     Active Substance: RITUXIMAB
     Indication: B precursor type acute leukaemia
     Dosage: 375 MG/M2, UNK
     Route: 042
  23. RITUXIMAB [Suspect]
     Active Substance: RITUXIMAB
     Dosage: TOTAL DOSE ADMINISTERED: 800 MILLIGRAM
     Route: 040
  24. HYDROCORTISONE [Suspect]
     Active Substance: HYDROCORTISONE
     Indication: B precursor type acute leukaemia
     Dosage: 50 MG, UNK
     Route: 037
  25. PEGASPARGASE [Suspect]
     Active Substance: PEGASPARGASE
     Indication: B precursor type acute leukaemia
     Dosage: 2000 IU/M2, UNK
     Route: 065
  26. NEULASTA [Concomitant]
     Active Substance: PEGFILGRASTIM
     Route: 065
  27. LOVENOX [Concomitant]
     Active Substance: ENOXAPARIN SODIUM

REACTIONS (11)
  - Pulmonary oedema [Recovering/Resolving]
  - Chronic kidney disease [Unknown]
  - Hypertension [Unknown]
  - Acute kidney injury [Recovered/Resolved with Sequelae]
  - Hyperphosphataemia [Unknown]
  - Sinus tachycardia [Recovering/Resolving]
  - Alanine aminotransferase increased [Unknown]
  - Pneumonia [Unknown]
  - Anaemia [Unknown]
  - Hyperuricaemia [Unknown]
  - Nausea [Unknown]

NARRATIVE: CASE EVENT DATE: 20190111
